FAERS Safety Report 7864276-0 (Version None)
Quarter: 2011Q4

REPORT INFORMATION
  Report Type: 
  Country: None (occurrence: None)
  Receive Date: 20111028
  Receipt Date: 20100924
  Transmission Date: 20120403
  Serious: No
  Sender: FDA-Public Use
  Company Number: US-GLAXOSMITHKLINE-A0883219A

PATIENT
  Age: 74 Year
  Sex: Female

DRUGS (4)
  1. EYE DROPS [Concomitant]
  2. SINGULAIR [Concomitant]
  3. SEREVENT [Suspect]
     Indication: ASTHMA
     Dosage: 1PUFF TWICE PER DAY
     Route: 055
     Dates: end: 20100501
  4. ATROVENT [Concomitant]

REACTIONS (1)
  - TREMOR [None]
